FAERS Safety Report 14783559 (Version 1)
Quarter: 2018Q2

REPORT INFORMATION
  Report Type: Spontaneous
  Country: US (occurrence: US)
  Receive Date: 20180420
  Receipt Date: 20180420
  Transmission Date: 20180711
  Serious: Yes (Hospitalization, Other)
  Sender: FDA-Public Use
  Company Number: US-JNJFOC-20180423424

PATIENT
  Age: 74 Year
  Sex: Female

DRUGS (10)
  1. VITAMIN D [Concomitant]
     Active Substance: CHOLECALCIFEROL
  2. CENTRUM SILVER [Concomitant]
     Active Substance: MINERALS\VITAMINS
  3. VALTREX [Concomitant]
     Active Substance: VALACYCLOVIR HYDROCHLORIDE
  4. PREDNISONE. [Concomitant]
     Active Substance: PREDNISONE
  5. GABAPENTIN. [Concomitant]
     Active Substance: GABAPENTIN
  6. PROLIA [Concomitant]
     Active Substance: DENOSUMAB
  7. FISH OIL [Concomitant]
     Active Substance: FISH OIL
  8. COQ 10 [Concomitant]
     Active Substance: UBIDECARENONE
  9. CITRACAL [Concomitant]
     Active Substance: CALCIUM CITRATE
  10. IMBRUVICA [Suspect]
     Active Substance: IBRUTINIB
     Indication: CHRONIC LYMPHOCYTIC LEUKAEMIA
     Route: 048
     Dates: start: 20170623

REACTIONS (2)
  - Injury [Unknown]
  - Fall [Unknown]

NARRATIVE: CASE EVENT DATE: 20180410
